FAERS Safety Report 5711476-1 (Version None)
Quarter: 2008Q2

REPORT INFORMATION
  Report Type: 
  Country: None (occurrence: None)
  Receive Date: 20080421
  Receipt Date: 20080411
  Transmission Date: 20081010
  Serious: Yes (Disabling, Other)
  Sender: FDA-Public Use
  Company Number: US-MERCK-0706USA03527

PATIENT
  Age: 50 Year
  Sex: Female
  Weight: 57 kg

DRUGS (6)
  1. HORMONES (UNSPECIFIED) [Concomitant]
     Route: 065
     Dates: start: 19950101
  2. ANTINEOPLASTIC (UNSPECIFIED) [Concomitant]
     Route: 065
     Dates: start: 20070101, end: 20070901
  3. FOSAMAX PLUS D [Suspect]
     Route: 048
  4. FOSAMAX [Suspect]
     Route: 048
     Dates: start: 19950101, end: 20050420
  5. FOSAMAX [Suspect]
     Route: 048
     Dates: start: 20000929, end: 20050729
  6. FOSAMAX [Suspect]
     Route: 048
     Dates: start: 20050920, end: 20071210

REACTIONS (31)
  - ABDOMINAL PAIN LOWER [None]
  - ABSCESS [None]
  - ACUTE SINUSITIS [None]
  - ANXIETY [None]
  - BLOOD CHOLESTEROL INCREASED [None]
  - BRONCHITIS [None]
  - CENTRAL NERVOUS SYSTEM LYMPHOMA [None]
  - CHEST DISCOMFORT [None]
  - COUGH [None]
  - DENTAL CARIES [None]
  - DYSPEPSIA [None]
  - DYSPHAGIA [None]
  - INSOMNIA [None]
  - LYMPHADENITIS [None]
  - NASOPHARYNGITIS [None]
  - NEOPLASM MALIGNANT [None]
  - OESOPHAGEAL DISCOMFORT [None]
  - ONYCHOMYCOSIS [None]
  - ORAL INFECTION [None]
  - OSTEONECROSIS [None]
  - OSTEOPENIA [None]
  - PAIN IN JAW [None]
  - PANCYTOPENIA [None]
  - RHINITIS ALLERGIC [None]
  - SEASONAL ALLERGY [None]
  - SINUSITIS [None]
  - STRESS [None]
  - TOOTH LOSS [None]
  - TOOTHACHE [None]
  - UPPER RESPIRATORY TRACT CONGESTION [None]
  - UPPER RESPIRATORY TRACT INFECTION [None]
